FAERS Safety Report 12308947 (Version 1)
Quarter: 2016Q2

REPORT INFORMATION
  Report Type: Spontaneous
  Country: CA (occurrence: CA)
  Receive Date: 20160427
  Receipt Date: 20160427
  Transmission Date: 20160815
  Serious: Yes (Other)
  Sender: FDA-Public Use
  Company Number: CA-BAXTER-2016BAX020351

PATIENT
  Age: 66 Year
  Sex: Male

DRUGS (3)
  1. PROCYTOX (CYCLOPHOSPHAMIDE) 2000MG/VIAL [Suspect]
     Active Substance: CYCLOPHOSPHAMIDE
     Indication: AMYLOIDOSIS
     Route: 065
  2. PROCYTOX (CYCLOPHOSPHAMIDE) 2000MG/VIAL [Suspect]
     Active Substance: CYCLOPHOSPHAMIDE
     Indication: OFF LABEL USE
  3. VELCADE [Suspect]
     Active Substance: BORTEZOMIB
     Indication: AMYLOIDOSIS
     Dosage: SINGLE USE VIAL, POWDER FOR SOLUTION INTRAVENOUS
     Route: 065

REACTIONS (4)
  - Off label use [Not Recovered/Not Resolved]
  - Fluid retention [Not Recovered/Not Resolved]
  - Product use issue [Not Recovered/Not Resolved]
  - Blood albumin decreased [Not Recovered/Not Resolved]
